FAERS Safety Report 9117916 (Version 1)
Quarter: 2013Q1

REPORT INFORMATION
  Report Type: Spontaneous
  Country: JP (occurrence: JP)
  Receive Date: 20130225
  Receipt Date: 20130225
  Transmission Date: 20140127
  Serious: Yes (Hospitalization, Other)
  Sender: FDA-Public Use
  Company Number: PHHY2011JP33594

PATIENT
  Age: 61 Year
  Sex: Male

DRUGS (4)
  1. CARBAMAZEPINE [Suspect]
     Indication: CONVULSION
     Route: 048
  2. CILOSTAZOL [Suspect]
     Route: 048
  3. EPERISONE HYDROCHLORIDE [Suspect]
     Route: 048
  4. IFENPRODIL [Suspect]
     Route: 048
     Dates: start: 201106

REACTIONS (17)
  - Drug reaction with eosinophilia and systemic symptoms [Recovering/Resolving]
  - Rash pustular [Recovering/Resolving]
  - Erythema [Recovering/Resolving]
  - Oropharyngeal pain [Unknown]
  - Pyrexia [Recovering/Resolving]
  - Epiglottitis [Recovering/Resolving]
  - Skin test positive [Unknown]
  - Apoptosis [Unknown]
  - Acanthosis [Unknown]
  - Eczema [Unknown]
  - Skin lesion [Recovering/Resolving]
  - Rash [Recovering/Resolving]
  - Extravasation [Unknown]
  - Lymphocytic infiltration [Unknown]
  - Dysphagia [Unknown]
  - Muscular weakness [Recovering/Resolving]
  - Human herpes virus 6 serology positive [Unknown]
